FAERS Safety Report 13092712 (Version 2)
Quarter: 2017Q1

REPORT INFORMATION
  Report Type: Spontaneous
  Country: KZ (occurrence: KZ)
  Receive Date: 20170106
  Receipt Date: 20170221
  Transmission Date: 20170428
  Serious: Yes (Death, Life-Threatening)
  Sender: FDA-Public Use
  Company Number: KZ-JNJFOC-20161226750

PATIENT
  Age: 62 Year
  Weight: 44 kg

DRUGS (29)
  1. PROTHIONAMIDE [Suspect]
     Active Substance: PROTIONAMIDE
     Indication: TUBERCULOSIS
     Route: 048
     Dates: start: 20160408
  2. PYRAZINAMIDE. [Suspect]
     Active Substance: PYRAZINAMIDE
     Indication: TUBERCULOSIS
     Route: 048
     Dates: start: 20160408
  3. LINEZOLID. [Suspect]
     Active Substance: LINEZOLID
     Indication: TUBERCULOSIS
     Route: 048
     Dates: start: 20160408
  4. NEUROMULTIVIT [Concomitant]
     Active Substance: CYANOCOBALAMIN\PYRIDOXINE\THIAMINE
     Route: 065
  5. SALMETEROL XINAFOATE [Concomitant]
     Active Substance: SALMETEROL XINAFOATE
     Route: 055
  6. CYCLOSERINE. [Suspect]
     Active Substance: CYCLOSERINE
     Indication: TUBERCULOSIS
     Route: 048
     Dates: start: 20160408
  7. PARA-AMINOSALICYLIC ACID [Suspect]
     Active Substance: AMINOSALICYLIC ACID
     Indication: TUBERCULOSIS
     Route: 048
     Dates: start: 20160408
  8. LEVAMISOLE [Concomitant]
     Active Substance: LEVAMISOLE
     Route: 065
  9. VITAMIN B1 AND B6 [Concomitant]
     Active Substance: PYRIDOXINE HYDROCHLORIDE\THIAMINE HYDROCHLORIDE
     Route: 030
  10. CARDIKET [Concomitant]
     Active Substance: ISOSORBIDE DINITRATE
     Route: 065
  11. BEDAQUILINE [Suspect]
     Active Substance: BEDAQUILINE
     Indication: TUBERCULOSIS
     Route: 048
     Dates: start: 20160408
  12. CLOFAZIMINE [Suspect]
     Active Substance: CLOFAZIMINE
     Indication: TUBERCULOSIS
     Route: 048
  13. PANCREATIN [Concomitant]
     Active Substance: PANCRELIPASE
     Route: 065
  14. MEZYM FORTE [Concomitant]
     Active Substance: PANCRELIPASE
     Route: 065
  15. PANTOPRAZOLE [Concomitant]
     Active Substance: PANTOPRAZOLE SODIUM
     Route: 065
  16. LACTULOSE. [Concomitant]
     Active Substance: LACTULOSE
     Route: 065
  17. GLUTARGIN [Concomitant]
     Route: 065
  18. VITAMINE C [Concomitant]
     Active Substance: ASCORBIC ACID
     Route: 065
  19. LEVOFLOXACIN. [Suspect]
     Active Substance: LEVOFLOXACIN
     Indication: TUBERCULOSIS
     Route: 048
     Dates: start: 20160408
  20. INDAPAMIDE. [Concomitant]
     Active Substance: INDAPAMIDE
     Route: 065
  21. ACETYLSALICYLIC ACID [Concomitant]
     Active Substance: ASPIRIN
     Dosage: EVENING
     Route: 065
  22. PENTOXYFYLLIN [Concomitant]
     Route: 065
  23. AMLODIPINE [Concomitant]
     Active Substance: AMLODIPINE BESYLATE
     Route: 065
  24. SALBUTAMOL [Concomitant]
     Active Substance: ALBUTEROL
  25. VITAMIN B6 [Concomitant]
     Active Substance: PYRIDOXINE HYDROCHLORIDE
     Route: 030
  26. NADROPARIN CALCIUM [Concomitant]
     Active Substance: NADROPARIN CALCIUM
     Route: 058
  27. AMBROXOL [Concomitant]
     Active Substance: AMBROXOL
     Route: 065
  28. SODIUM THIOSULFATE [Concomitant]
     Active Substance: SODIUM THIOSULFATE
     Route: 065
  29. ADEMETIONINE [Concomitant]
     Active Substance: ADEMETIONINE
     Route: 048

REACTIONS (3)
  - Chronic obstructive pulmonary disease [Fatal]
  - Hepatitis [Not Recovered/Not Resolved]
  - Pulmonary tuberculosis [Fatal]

NARRATIVE: CASE EVENT DATE: 20161107
